FAERS Safety Report 10217472 (Version 1)
Quarter: 2014Q2

REPORT INFORMATION
  Report Type: Spontaneous
  Country: US (occurrence: US)
  Receive Date: 20140604
  Receipt Date: 20140604
  Transmission Date: 20141212
  Serious: No
  Sender: FDA-Public Use
  Company Number: US-ASTRAZENECA-2013SE47129

PATIENT
  Sex: Female

DRUGS (3)
  1. VIMOVO [Suspect]
     Dosage: BID
     Route: 048
     Dates: start: 201305
  2. VIMOVO [Suspect]
     Dosage: HALF TABLET AM AND HALF TABLET IN PM
     Route: 048
  3. AMOXICILLIN [Suspect]
     Indication: TOOTH INFECTION
     Route: 065

REACTIONS (4)
  - Toothache [Recovered/Resolved]
  - Abdominal pain upper [Unknown]
  - Nausea [Recovered/Resolved]
  - Intentional product misuse [Not Recovered/Not Resolved]
